FAERS Safety Report 25921312 (Version 1)
Quarter: 2025Q4

REPORT INFORMATION
  Report Type: Spontaneous
  Country: US (occurrence: US)
  Receive Date: 20251014
  Receipt Date: 20251014
  Transmission Date: 20260117
  Serious: No
  Sender: SANOFI AVENTIS
  Company Number: US-SA-2025SA302486

PATIENT
  Age: 22 Year
  Sex: Male

DRUGS (2)
  1. ALTUVIIIO [Suspect]
     Active Substance: EFANESOCTOCOG ALFA
     Indication: Factor VIII deficiency
     Dosage: 3500 IU, QW
     Route: 042
     Dates: start: 202507
  2. ALTUVIIIO [Suspect]
     Active Substance: EFANESOCTOCOG ALFA
     Dosage: 3500 IU, PRN
     Route: 042
     Dates: start: 202507

REACTIONS (2)
  - Gingival bleeding [Unknown]
  - Product dose omission issue [Unknown]

NARRATIVE: CASE EVENT DATE: 20250101
